FAERS Safety Report 5081637-6 (Version None)
Quarter: 2006Q3

REPORT INFORMATION
  Report Type: 
  Country: None (occurrence: None)
  Receive Date: 20060811
  Receipt Date: 20060803
  Transmission Date: 20061208
  Serious: Yes (Death, Hospitalization)
  Sender: FDA-Public Use
  Company Number: 2006-07-1807

PATIENT
  Age: 93 Year
  Sex: Male

DRUGS (6)
  1. NITRO-DUR .2MG HR SYSTEM (NITROGLYCERIN} TRANSDDERMAL [Suspect]
     Indication: ANGINA PECTORIS
     Dosage: 0.2MG Q12H AM TRANSDERMA
     Route: 062
     Dates: start: 20060313, end: 20060725
  2. NITRO-DUR .2MG HR SYSTEM (NITROGLYCERIN} TRANSDDERMAL [Suspect]
     Indication: PROPHYLAXIS
     Dosage: 0.2MG Q12H AM TRANSDERMA
     Route: 062
     Dates: start: 20060313, end: 20060725
  3. BISOPROLOL FUMARATE [Concomitant]
  4. CITALOPRAM [Concomitant]
  5. DONEPEZIL HCL [Concomitant]
  6. FUROSEMIDE [Concomitant]

REACTIONS (13)
  - CARDIAC FAILURE [None]
  - CHRONIC OBSTRUCTIVE PULMONARY DISEASE [None]
  - CONFUSIONAL STATE [None]
  - CORONARY ARTERY DISEASE [None]
  - DEMENTIA [None]
  - DEPRESSION [None]
  - FALL [None]
  - HIP FRACTURE [None]
  - HYPERTENSION [None]
  - HYPOTENSION [None]
  - RENAL FAILURE [None]
  - WOUND [None]
  - WRONG TECHNIQUE IN DRUG USAGE PROCESS [None]
